FAERS Safety Report 4273938-6 (Version None)
Quarter: 2004Q1

REPORT INFORMATION
  Report Type: 
  Country: None (occurrence: None)
  Receive Date: 20040115
  Receipt Date: 20031230
  Transmission Date: 20041129
  Serious: Yes (Other)
  Sender: FDA-Public Use
  Company Number: US_040199700

PATIENT
  Sex: Male
  Weight: 118 kg

DRUGS (3)
  1. HUMALOG [Suspect]
     Dosage: 10 U/1 DAY
     Dates: start: 19980101
  2. HUMALOG MIX 75/25 [Suspect]
  3. HUMULIN N [Suspect]
     Dosage: 30 U/ 1DAY

REACTIONS (9)
  - DIABETES MELLITUS INADEQUATE CONTROL [None]
  - DIZZINESS [None]
  - MUSCLE TIGHTNESS [None]
  - NEUROPATHY [None]
  - OEDEMA PERIPHERAL [None]
  - PAIN IN EXTREMITY [None]
  - PROSTATE CANCER RECURRENT [None]
  - PROSTATIC SPECIFIC ANTIGEN INCREASED [None]
  - WEIGHT DECREASED [None]
